FAERS Safety Report 8495394-4 (Version None)
Quarter: 2012Q3

REPORT INFORMATION
  Report Type: 
  Country: None (occurrence: None)
  Receive Date: 20120709
  Receipt Date: 20120629
  Transmission Date: 20120928
  Serious: Yes (Hospitalization)
  Sender: FDA-Public Use
  Company Number: BR-ASTRAZENECA-2012SE44934

PATIENT
  Age: 60 Year
  Sex: Male
  Weight: 86 kg

DRUGS (5)
  1. METOPROLOL SUCCINATE [Suspect]
     Indication: TACHYCARDIA
     Route: 048
     Dates: start: 20110101, end: 20120628
  2. ATORVASTATIN [Concomitant]
     Route: 048
     Dates: start: 20110101
  3. ATENOLOL AND CHLORTHALIDONE [Suspect]
     Route: 048
     Dates: end: 20110101
  4. FIBRATE [Concomitant]
     Route: 048
     Dates: start: 20110101
  5. METOPROLOL SUCCINATE [Suspect]
     Route: 048
     Dates: start: 20120629

REACTIONS (3)
  - CORONARY ARTERY OCCLUSION [None]
  - HEADACHE [None]
  - BLOOD PRESSURE INCREASED [None]
